FAERS Safety Report 4507552-1 (Version None)
Quarter: 2004Q4

REPORT INFORMATION
  Report Type: 
  Country: None (occurrence: None)
  Receive Date: 20041018
  Receipt Date: 20040901
  Transmission Date: 20050328
  Serious: No
  Sender: FDA-Public Use
  Company Number: 208822

PATIENT
  Age: 45 Year
  Sex: Female
  Weight: 86.2 kg

DRUGS (7)
  1. XOLAIR [Suspect]
     Indication: ASTHMA
     Dosage: 125 MG; 150 MG : Q2W, SUBCUTANEOUS
     Route: 058
     Dates: start: 20031029, end: 20040901
  2. XOLAIR [Suspect]
     Indication: ASTHMA
     Dosage: 125 MG; 150 MG : Q2W, SUBCUTANEOUS
     Route: 058
     Dates: start: 20040902
  3. ALBUTEROL (ALBUTEROL SULFATE, ALBUTEROL) [Concomitant]
  4. ACIPHEX [Concomitant]
  5. ESTRADERM [Concomitant]
  6. NEURONTIN [Concomitant]
  7. PREDNISONE [Concomitant]

REACTIONS (1)
  - MUSCLE CRAMP [None]
